FAERS Safety Report 13452959 (Version 3)
Quarter: 2017Q2

REPORT INFORMATION
  Report Type: Report from Study
  Country: US (occurrence: US)
  Receive Date: 20170418
  Receipt Date: 20170609
  Transmission Date: 20170830
  Serious: Yes (Other)
  Sender: FDA-Public Use
  Company Number: US-AMGEN-USASL2017057695

PATIENT
  Age: 81 Year
  Sex: Female

DRUGS (2)
  1. REPATHA [Suspect]
     Active Substance: EVOLOCUMAB
     Indication: LOW DENSITY LIPOPROTEIN INCREASED
     Dosage: 140 MG, TWICE PER MONTH
     Route: 065
     Dates: start: 20170602
  2. REPATHA [Suspect]
     Active Substance: EVOLOCUMAB
     Indication: HYPERCHOLESTEROLAEMIA
     Dosage: 140 MG, TWICE PER MONTH
     Route: 065
     Dates: start: 2016, end: 201612

REACTIONS (4)
  - Drug dose omission [Unknown]
  - Sjogren^s syndrome [Unknown]
  - Wrong technique in product usage process [Unknown]
  - Myositis [Unknown]

NARRATIVE: CASE EVENT DATE: 201612
